FAERS Safety Report 14145062 (Version 1)
Quarter: 2017Q4

REPORT INFORMATION
  Report Type: Spontaneous
  Country: US (occurrence: US)
  Receive Date: 20171031
  Receipt Date: 20171031
  Transmission Date: 20180321
  Serious: Yes (Hospitalization)
  Sender: FDA-Public Use
  Company Number: US-ASTRAZENECA-2017SF09313

PATIENT
  Age: 56 Year
  Sex: Male
  Weight: 60.8 kg

DRUGS (6)
  1. SPIRIVA [Concomitant]
     Active Substance: TIOTROPIUM BROMIDE MONOHYDRATE
     Indication: SARCOIDOSIS
     Route: 055
     Dates: start: 2010
  2. PULMICORT FLEXHALER [Suspect]
     Active Substance: BUDESONIDE
     Indication: INFLAMMATION
     Dosage: 3 TO 4 PUFFS TWICE A DAY
     Route: 055
     Dates: start: 2010
  3. PREDNISONE. [Concomitant]
     Active Substance: PREDNISONE
  4. PULMICORT FLEXHALER [Suspect]
     Active Substance: BUDESONIDE
     Indication: INFLAMMATION
     Route: 055
     Dates: start: 2010
  5. PULMICORT FLEXHALER [Suspect]
     Active Substance: BUDESONIDE
     Indication: SARCOIDOSIS
     Dosage: 3 TO 4 PUFFS TWICE A DAY
     Route: 055
     Dates: start: 2010
  6. PULMICORT FLEXHALER [Suspect]
     Active Substance: BUDESONIDE
     Indication: SARCOIDOSIS
     Route: 055
     Dates: start: 2010

REACTIONS (11)
  - Infectious pleural effusion [Unknown]
  - Off label use [Unknown]
  - Device malfunction [Unknown]
  - Pleural effusion [Unknown]
  - Dementia [Unknown]
  - Intentional product misuse [Unknown]
  - Wrong technique in product usage process [Unknown]
  - Pleurocutaneous fistula [Unknown]
  - Product use in unapproved indication [Unknown]
  - Lung infection [Unknown]
  - Drug dose omission [Unknown]

NARRATIVE: CASE EVENT DATE: 2010
